FAERS Safety Report 4512617-4 (Version None)
Quarter: 2004Q4

REPORT INFORMATION
  Report Type: 
  Country: None (occurrence: None)
  Receive Date: 20041008
  Receipt Date: 20040902
  Transmission Date: 20050328
  Serious: No
  Sender: FDA-Public Use
  Company Number: 2004S1000182

PATIENT
  Age: 25 Year
  Sex: 0

DRUGS (6)
  1. CUBICIN [Suspect]
     Indication: CARDIAC VALVE REPLACEMENT COMPLICATION
     Dosage: 8 MG/KG; Q48H; IV
     Route: 042
     Dates: start: 20040101
  2. CUBICIN [Suspect]
     Indication: ENDOCARDITIS
     Dosage: 8 MG/KG; Q48H; IV
     Route: 042
     Dates: start: 20040101
  3. CUBICIN [Suspect]
     Indication: PATHOGEN RESISTANCE
     Dosage: 8 MG/KG; Q48H; IV
     Route: 042
     Dates: start: 20040101
  4. LINEZOLID [Concomitant]
  5. GENTAMICIN [Concomitant]
  6. RIFAMPICIN [Concomitant]

REACTIONS (1)
  - PAIN [None]
